FAERS Safety Report 8085271-5 (Version None)
Quarter: 2012Q1

REPORT INFORMATION
  Report Type: 
  Country: None (occurrence: None)
  Receive Date: 20120128
  Receipt Date: 20110321
  Transmission Date: 20120608
  Serious: No
  Sender: FDA-Public Use
  Company Number: US-ABBOTT-11P-163-0713342-00

PATIENT
  Age: 40 Year
  Sex: Female

DRUGS (2)
  1. 20 UNKNOWN MEDICATIONS [Concomitant]
     Indication: PRODUCT USED FOR UNKNOWN INDICATION
  2. HUMIRA [Suspect]
     Indication: PSORIASIS
     Dates: start: 20100401

REACTIONS (4)
  - DEVICE MALFUNCTION [None]
  - PSORIASIS [None]
  - INJECTION SITE PAIN [None]
  - DRUG DOSE OMISSION [None]
